FAERS Safety Report 7966404-5 (Version None)
Quarter: 2011Q4

REPORT INFORMATION
  Report Type: 
  Country: None (occurrence: None)
  Receive Date: 20111208
  Receipt Date: 20111201
  Transmission Date: 20120403
  Serious: Yes (Death, Other)
  Sender: FDA-Public Use
  Company Number: US-BAXTER-2011BH037964

PATIENT
  Sex: Female

DRUGS (2)
  1. ARALAST NP [Suspect]
     Route: 042
     Dates: start: 20110816, end: 20110816
  2. ARALAST NP [Suspect]
     Indication: PRODUCT USED FOR UNKNOWN INDICATION
     Route: 042

REACTIONS (4)
  - RENAL FAILURE ACUTE [None]
  - SHOCK [None]
  - ACUTE RESPIRATORY FAILURE [None]
  - INTESTINAL PERFORATION [None]
